FAERS Safety Report 6654161-4 (Version None)
Quarter: 2010Q1

REPORT INFORMATION
  Report Type: 
  Country: None (occurrence: None)
  Receive Date: 20100326
  Receipt Date: 20100318
  Transmission Date: 20100710
  Serious: Yes (Other)
  Sender: FDA-Public Use
  Company Number: BR-PFIZER INC-2010034975

PATIENT
  Age: 33 Year
  Sex: Male
  Weight: 124 kg

DRUGS (3)
  1. LIPITOR [Suspect]
     Indication: BLOOD CHOLESTEROL INCREASED
     Dosage: 20 MG, 1X/DAY
     Route: 048
     Dates: start: 20100218, end: 20100308
  2. ASCORBIC ACID [Concomitant]
     Dosage: UNK
     Dates: start: 20050301
  3. MULTI-VITAMINS [Concomitant]

REACTIONS (1)
  - RASH [None]
